FAERS Safety Report 16890397 (Version 1)
Quarter: 2019Q4

REPORT INFORMATION
  Report Type: Spontaneous
  Country: JP (occurrence: JP)
  Receive Date: 20191007
  Receipt Date: 20191007
  Transmission Date: 20200122
  Serious: Yes (Hospitalization, Disabling, Other)
  Sender: FDA-Public Use
  Company Number: JP-GLAXOSMITHKLINE-B0609205A

PATIENT
  Age: 79 Year
  Sex: Female
  Weight: 59 kg

DRUGS (7)
  1. VALACICLOVIR HYDROCHLORIDE [Suspect]
     Active Substance: VALACYCLOVIR HYDROCHLORIDE
     Indication: HERPES ZOSTER
     Route: 048
     Dates: start: 20091120, end: 20091121
  2. BAYASPIRIN [Concomitant]
     Active Substance: ASPIRIN
     Route: 048
  3. LANSOPRAZOLE. [Concomitant]
     Active Substance: LANSOPRAZOLE
     Route: 065
  4. RISUMIC [Concomitant]
     Active Substance: AMEZINIUM METILSULFATE
     Route: 048
  5. ANPLAG [Concomitant]
     Active Substance: SARPOGRELATE
     Route: 048
  6. WARFARIN [Concomitant]
     Active Substance: WARFARIN
     Route: 048
  7. URSO [Concomitant]
     Active Substance: URSODIOL
     Route: 048

REACTIONS (7)
  - Altered state of consciousness [Recovered/Resolved]
  - Dysarthria [Unknown]
  - Amnesia [Unknown]
  - Prescribed overdose [Unknown]
  - Cerebral infarction [Unknown]
  - Toxic encephalopathy [Recovered/Resolved]
  - Dyslalia [Recovered/Resolved]

NARRATIVE: CASE EVENT DATE: 20091120
